FAERS Safety Report 22353850 (Version 7)
Quarter: 2025Q1

REPORT INFORMATION
  Report Type: Spontaneous
  Country: JP (occurrence: JP)
  Receive Date: 20230523
  Receipt Date: 20250207
  Transmission Date: 20250409
  Serious: Yes (Hospitalization, Other)
  Sender: BRISTOL-MYERS SQUIBB COMPANY
  Company Number: JP-BRISTOL-MYERS SQUIBB COMPANY-2023-010308

PATIENT
  Age: 80 Year
  Sex: Male
  Weight: 54.1 kg

DRUGS (13)
  1. OPDIVO [Suspect]
     Active Substance: NIVOLUMAB
     Indication: Pleural mesothelioma malignant
     Route: 041
     Dates: start: 20220928, end: 20221130
  2. YERVOY [Suspect]
     Active Substance: IPILIMUMAB
     Indication: Pleural mesothelioma malignant
     Route: 041
     Dates: start: 20220928, end: 20221109
  3. PREDONINE [Suspect]
     Active Substance: PREDNISOLONE
     Indication: Vogt-Koyanagi-Harada disease
     Dates: start: 20221202
  4. PREDONINE [Suspect]
     Active Substance: PREDNISOLONE
     Dates: start: 20230303
  5. PREDONINE [Suspect]
     Active Substance: PREDNISOLONE
     Dates: start: 20230310
  6. PREDONINE [Suspect]
     Active Substance: PREDNISOLONE
     Dates: start: 20230317
  7. PREDONINE [Suspect]
     Active Substance: PREDNISOLONE
     Dates: start: 20230324, end: 20230407
  8. PREDONINE [Suspect]
     Active Substance: PREDNISOLONE
     Dates: start: 20230331, end: 20230407
  9. AMLODIPINE BESYLATE [Concomitant]
     Active Substance: AMLODIPINE BESYLATE
     Indication: Hypertension
     Route: 048
  10. CANDESARTAN CILEXETIL [Concomitant]
     Active Substance: CANDESARTAN CILEXETIL
     Indication: Hypertension
     Route: 048
  11. BONALON [Concomitant]
     Active Substance: ALENDRONATE SODIUM
     Indication: Prophylaxis
     Route: 048
  12. BONALON [Concomitant]
     Active Substance: ALENDRONATE SODIUM
     Route: 048
  13. FAMOTIDINE [Concomitant]
     Active Substance: FAMOTIDINE
     Indication: Prophylaxis
     Route: 048

REACTIONS (3)
  - Vogt-Koyanagi-Harada disease [Recovering/Resolving]
  - Cutaneous nocardiosis [Recovering/Resolving]
  - Pulmonary nocardiosis [Recovering/Resolving]

NARRATIVE: CASE EVENT DATE: 20221109
